FAERS Safety Report 9813096 (Version 1)
Quarter: 2014Q1

REPORT INFORMATION
  Report Type: Report from Study
  Country: CA (occurrence: CA)
  Receive Date: 20140113
  Receipt Date: 20140113
  Transmission Date: 20141002
  Serious: Yes (Other)
  Sender: FDA-Public Use
  Company Number: CA-JNJFOC-20140103655

PATIENT
  Sex: Female
  Weight: 48.1 kg

DRUGS (12)
  1. REMICADE [Suspect]
     Indication: RHEUMATOID ARTHRITIS
     Route: 042
     Dates: start: 20090707
  2. CLOBAZAM [Concomitant]
     Route: 065
  3. NEXIUM [Concomitant]
     Route: 065
  4. TEGRETOL [Concomitant]
     Route: 065
  5. METOPROLOL [Concomitant]
     Route: 065
  6. FELODIPINE [Concomitant]
     Route: 065
  7. PREDNISONE [Concomitant]
     Route: 065
  8. SYNTHROID [Concomitant]
     Route: 065
  9. RESTASIS [Concomitant]
     Route: 065
  10. GABAPENTIN [Concomitant]
     Route: 065
  11. METHOTREXATE [Concomitant]
     Route: 065
  12. TRIIODOTHYRONINE [Concomitant]
     Route: 065

REACTIONS (1)
  - Cataract [Unknown]
